FAERS Safety Report 24068059 (Version 2)
Quarter: 2024Q3

REPORT INFORMATION
  Report Type: Spontaneous
  Country: US (occurrence: US)
  Receive Date: 20240710
  Receipt Date: 20240730
  Transmission Date: 20241016
  Serious: Yes (Other)
  Sender: ENDO
  Company Number: US-ENDO USA, INC.-2024-002834

PATIENT
  Sex: Male

DRUGS (1)
  1. PERCOCET [Suspect]
     Active Substance: ACETAMINOPHEN\OXYCODONE HYDROCHLORIDE
     Indication: Pain
     Dosage: UNK UNKNOWN, UNKNOWN
     Route: 065
     Dates: start: 2021

REACTIONS (3)
  - Arthropathy [Unknown]
  - Constipation [Unknown]
  - Product dose omission issue [Not Recovered/Not Resolved]

NARRATIVE: CASE EVENT DATE: 20210101
